FAERS Safety Report 16196713 (Version 2)
Quarter: 2019Q2

REPORT INFORMATION
  Report Type: Spontaneous
  Country: ES (occurrence: ES)
  Receive Date: 20190415
  Receipt Date: 20190606
  Transmission Date: 20190711
  Serious: Yes (Other)
  Sender: FDA-Public Use
  Company Number: ES-CELGENEUS-ESP-20190400844

PATIENT
  Age: 58 Year
  Sex: Male

DRUGS (8)
  1. DEXAMETHASONE. [Concomitant]
     Active Substance: DEXAMETHASONE
     Route: 065
     Dates: start: 20180705
  2. DARATUMUMAB [Concomitant]
     Active Substance: DARATUMUMAB
     Indication: PLASMA CELL MYELOMA
     Route: 065
  3. BORTEZOMIB. [Concomitant]
     Active Substance: BORTEZOMIB
     Indication: PLASMA CELL MYELOMA
     Route: 065
  4. BORTEZOMIB. [Concomitant]
     Active Substance: BORTEZOMIB
     Route: 065
     Dates: start: 20180705
  5. DEXAMETHASONE. [Concomitant]
     Active Substance: DEXAMETHASONE
     Indication: PLASMA CELL MYELOMA
     Route: 065
  6. DARATUMUMAB [Concomitant]
     Active Substance: DARATUMUMAB
     Route: 065
     Dates: start: 20180705
  7. THALIDOMIDE [Suspect]
     Active Substance: THALIDOMIDE
     Dosage: 50 GRAM
     Route: 048
     Dates: start: 20180712
  8. THALIDOMIDE [Suspect]
     Active Substance: THALIDOMIDE
     Indication: PLASMA CELL MYELOMA
     Dosage: 200 MG/DAY X1 WEEK, 100MG/DAY X2 WEEKS, 50 MG/DAY X2 WEEKS
     Route: 048
     Dates: start: 201806, end: 2018

REACTIONS (4)
  - Intracranial hypotension [Recovered/Resolved]
  - Pulmonary embolism [Recovered/Resolved]
  - Subdural hygroma [Recovered/Resolved]
  - Febrile neutropenia [Recovered/Resolved]

NARRATIVE: CASE EVENT DATE: 20180606
